FAERS Safety Report 10169789 (Version 1)
Quarter: 2014Q2

REPORT INFORMATION
  Report Type: Spontaneous
  Country: US (occurrence: US)
  Receive Date: 20140513
  Receipt Date: 20140513
  Transmission Date: 20141212
  Serious: No
  Sender: FDA-Public Use
  Company Number: US-009507513-1404USA015480

PATIENT
  Age: 55 Year
  Sex: Female

DRUGS (1)
  1. PEGINTRON [Suspect]
     Dosage: REDIPEN
     Route: 058
     Dates: start: 20140406

REACTIONS (3)
  - No adverse event [Unknown]
  - Device malfunction [Unknown]
  - Inappropriate schedule of drug administration [Unknown]
